FAERS Safety Report 14239711 (Version 1)
Quarter: 2017Q4

REPORT INFORMATION
  Report Type: Spontaneous
  Country: US (occurrence: US)
  Receive Date: 20171130
  Receipt Date: 20171130
  Transmission Date: 20180321
  Serious: Yes (Other)
  Sender: FDA-Public Use
  Company Number: US-BAYER-2017-230469

PATIENT
  Age: 36 Year
  Sex: Female

DRUGS (2)
  1. MIRENA [Suspect]
     Active Substance: LEVONORGESTREL
     Dosage: 20 MCG/24HR, CONT
     Route: 015
     Dates: start: 20130212, end: 20151205
  2. MIRENA [Suspect]
     Active Substance: LEVONORGESTREL

REACTIONS (3)
  - Appendicitis [None]
  - Uterine perforation [None]
  - Abdominal pain [None]

NARRATIVE: CASE EVENT DATE: 20151204
